FAERS Safety Report 11079805 (Version 1)
Quarter: 2015Q2

REPORT INFORMATION
  Report Type: Other
  Country: DE (occurrence: AU)
  Receive Date: 20150430
  Receipt Date: 20150430
  Transmission Date: 20150821
  Serious: Yes (Other)
  Sender: FDA-Public Use
  Company Number: AU-MERZ NORTH AMERICA, INC.-15MRZ-00156

PATIENT
  Age: 30 Year
  Sex: Female

DRUGS (2)
  1. AETHOXYSKLEROL [Suspect]
     Active Substance: POLIDOCANOL
     Indication: VARICOSE VEIN
     Dosage: UNKNOWN
     Route: 013
     Dates: start: 2005
  2. LEVONORGESTREL. [Concomitant]
     Active Substance: LEVONORGESTREL

REACTIONS (8)
  - Pain in extremity [Recovered/Resolved]
  - Purpura [Recovered/Resolved]
  - Erythema [Recovered/Resolved]
  - Injection site swelling [Recovered/Resolved]
  - Neuralgia [Recovered/Resolved]
  - Hypoaesthesia [Recovered/Resolved]
  - Induration [Recovered/Resolved]
  - Skin ulcer [Recovered/Resolved]

NARRATIVE: CASE EVENT DATE: 2005
